FAERS Safety Report 14434503 (Version 1)
Quarter: 2018Q1

REPORT INFORMATION
  Report Type: Report from Study
  Country: CN (occurrence: CN)
  Receive Date: 20180124
  Receipt Date: 20180124
  Transmission Date: 20180509
  Serious: Yes (Hospitalization)
  Sender: FDA-Public Use
  Company Number: CN-ELI_LILLY_AND_COMPANY-CN201801007047

PATIENT
  Age: 31 Year
  Sex: Female
  Weight: 60 kg

DRUGS (6)
  1. INSULIN, LISPRO [Suspect]
     Active Substance: INSULIN LISPRO
     Dosage: 10 U, EACH EVENING
     Route: 058
     Dates: start: 201712
  2. INSULIN, LISPRO [Suspect]
     Active Substance: INSULIN LISPRO
     Dosage: 8 U, EACH EVENING
     Route: 058
     Dates: start: 201712
  3. INSULIN, LISPRO [Suspect]
     Active Substance: INSULIN LISPRO
     Indication: PRODUCT USED FOR UNKNOWN INDICATION
     Dosage: 10 U, EACH MORNING
     Route: 058
     Dates: start: 201712
  4. INSULIN, LISPRO [Suspect]
     Active Substance: INSULIN LISPRO
     Dosage: 6 U, NOON
     Route: 058
     Dates: start: 201712
  5. INSULIN, LISPRO [Suspect]
     Active Substance: INSULIN LISPRO
     Dosage: 12 U, EACH MORNING
     Route: 058
     Dates: start: 201712
  6. INSULIN, LISPRO [Suspect]
     Active Substance: INSULIN LISPRO
     Dosage: 8 U, NOON
     Route: 058
     Dates: start: 201712

REACTIONS (2)
  - Hypoglycaemia [Unknown]
  - Dizziness [Unknown]
